FAERS Safety Report 9796083 (Version 2)
Quarter: 2014Q1

REPORT INFORMATION
  Report Type: Spontaneous
  Country: FR (occurrence: FR)
  Receive Date: 20140103
  Receipt Date: 20140103
  Transmission Date: 20141002
  Serious: Yes (Other)
  Sender: FDA-Public Use
  Company Number: FR-ACTELION-A-CH2013-91862

PATIENT
  Age: 71 Year
  Sex: Male
  Weight: 68 kg

DRUGS (8)
  1. TRACLEER [Suspect]
     Indication: PULMONARY ARTERIAL HYPERTENSION
     Dosage: 125 MG, BID
     Route: 048
     Dates: start: 20130929, end: 20131015
  2. TRACLEER [Suspect]
     Dosage: 62.5 MG, BID
     Route: 048
     Dates: start: 20130829, end: 20130928
  3. REVATIO [Concomitant]
  4. ZENTROPIL [Concomitant]
  5. VISPRING [Concomitant]
  6. PREVISCAN [Concomitant]
  7. LASILIX [Concomitant]
  8. COVERSYL [Concomitant]

REACTIONS (9)
  - Transaminases increased [Recovered/Resolved]
  - Alanine aminotransferase increased [Recovered/Resolved]
  - Aspartate aminotransferase increased [Recovered/Resolved]
  - Blood alkaline phosphatase increased [Recovered/Resolved]
  - Blood bilirubin increased [Recovered/Resolved]
  - Nausea [Recovered/Resolved]
  - Pruritus [Recovered/Resolved]
  - Sleep disorder [Recovered/Resolved]
  - Pyrexia [Recovered/Resolved]
